FAERS Safety Report 4851076-9 (Version None)
Quarter: 2005Q4

REPORT INFORMATION
  Report Type: 
  Country: None (occurrence: None)
  Receive Date: 20051130
  Receipt Date: 20050919
  Transmission Date: 20060501
  Serious: No
  Sender: FDA-Public Use
  Company Number: FABR-11242

PATIENT
  Age: 41 Year
  Sex: Male
  Weight: 96.5 kg

DRUGS (11)
  1. FABRAZYME [Suspect]
     Indication: FABRY'S DISEASE
     Dosage: 90 MG Q2WKS IV
     Route: 042
     Dates: start: 20050818
  2. PHOSLO [Concomitant]
  3. SENSIPAR [Concomitant]
  4. LIPITOR [Concomitant]
  5. LOPRESSOR [Concomitant]
  6. LISINOPRIL [Concomitant]
  7. NORTRIPTYLINE HCL [Concomitant]
  8. NEPHROVITE [Concomitant]
  9. NEURONTIN [Concomitant]
  10. FOSRENAL [Concomitant]
  11. ULTRAM [Concomitant]

REACTIONS (2)
  - CHILLS [None]
  - PYREXIA [None]
